FAERS Safety Report 24082166 (Version 1)
Quarter: 2024Q3

REPORT INFORMATION
  Report Type: Spontaneous
  Country: TZ (occurrence: TZ)
  Receive Date: 20240712
  Receipt Date: 20240712
  Transmission Date: 20241016
  Serious: Yes (Other)
  Sender: RANBAXY
  Company Number: TZ-SUN PHARMACEUTICAL INDUSTRIES LTD-2024R1-455927

PATIENT
  Age: 22 Year
  Sex: Female

DRUGS (3)
  1. FERROUS SULFATE [Suspect]
     Active Substance: FERROUS SULFATE
     Indication: Malaria prophylaxis
     Dosage: UNK
     Route: 065
  2. FOLIC ACID [Suspect]
     Active Substance: FOLIC ACID
     Indication: Malaria
     Dosage: UNK
     Route: 065
  3. PYRIMETHAMINE\SULFADOXINE [Suspect]
     Active Substance: PYRIMETHAMINE\SULFADOXINE
     Indication: Malaria prophylaxis
     Dosage: UNK
     Route: 065

REACTIONS (4)
  - Exposure during pregnancy [Unknown]
  - Obstructed labour [Unknown]
  - Stillbirth [Unknown]
  - Foetal distress syndrome [Unknown]
